FAERS Safety Report 24413036 (Version 3)
Quarter: 2024Q4

REPORT INFORMATION
  Report Type: Spontaneous
  Country: US (occurrence: US)
  Receive Date: 20241008
  Receipt Date: 20241021
  Transmission Date: 20250114
  Serious: No
  Sender: SANOFI AVENTIS
  Company Number: US-SANOFI-02227243

PATIENT
  Age: 66 Year
  Sex: Male

DRUGS (1)
  1. LANTUS SOLOSTAR [Suspect]
     Active Substance: INSULIN GLARGINE
     Indication: Type 2 diabetes mellitus
     Dosage: 20 U, QD
     Route: 065
     Dates: start: 20240914

REACTIONS (4)
  - Gait disturbance [Recovered/Resolved]
  - Glycosylated haemoglobin increased [Recovered/Resolved]
  - Device delivery system issue [Unknown]
  - Device use issue [Unknown]
